FAERS Safety Report 10729514 (Version 1)
Quarter: 2015Q1

REPORT INFORMATION
  Report Type: Spontaneous
  Country: US (occurrence: US)
  Receive Date: 20150122
  Receipt Date: 20150122
  Transmission Date: 20150721
  Serious: Yes (Death, Hospitalization)
  Sender: FDA-Public Use
  Company Number: US-UNITED THERAPEUTICS-UNT-2014-007186

PATIENT
  Age: 83 Year
  Sex: Female
  Weight: 77.98 kg

DRUGS (6)
  1. TYVASO [Suspect]
     Active Substance: TREPROSTINIL
     Indication: PULMONARY ARTERIAL HYPERTENSION
     Dosage: 12-54 ?G, QID
     Dates: start: 20140509
  2. LETAIRIS [Concomitant]
     Active Substance: AMBRISENTAN
     Indication: PRODUCT USED FOR UNKNOWN INDICATION
  3. TYVASO [Suspect]
     Active Substance: TREPROSTINIL
     Dosage: 12-54 ?G, QID
     Dates: start: 20140510
  4. TYVASO [Suspect]
     Active Substance: TREPROSTINIL
     Dosage: 12-54 ?G, QID
     Dates: start: 20140510
  5. TYVASO [Suspect]
     Active Substance: TREPROSTINIL
     Dosage: 12-54 ?G, QID
     Dates: start: 20140510
  6. COUMADIN [Concomitant]
     Active Substance: WARFARIN SODIUM
     Indication: PRODUCT USED FOR UNKNOWN INDICATION

REACTIONS (8)
  - Dyspnoea [Unknown]
  - Wound [Unknown]
  - Throat irritation [Not Recovered/Not Resolved]
  - Death [Fatal]
  - Renal impairment [Unknown]
  - Pulmonary arterial hypertension [Unknown]
  - Cardiac disorder [Unknown]
  - Fluid retention [Unknown]

NARRATIVE: CASE EVENT DATE: 2014
